FAERS Safety Report 8236182 (Version 2)
Quarter: 2013Q2

REPORT INFORMATION
  Report Type: Spontaneous
  Country: US (occurrence: None)
  Receive Date: 20111028
  Receipt Date: 20121024
  Transmission Date: 20140414
  Serious: Yes (Hospitalization)
  Sender: FDA-Public Use
  Company Number: DSA_46987_2011

PATIENT
  Age: 55 Year
  Sex: Male

DRUGS (7)
  1. WELLBUTRIN [Suspect]
     Indication: DEPRESSION
     Dosage: (DF)
     Dates: start: 20110515, end: 20110614
  2. LISINOPRIL [Concomitant]
  3. SERTRALINE HYDROCHLORIDE [Concomitant]
  4. SIMVASTATIN [Concomitant]
  5. TRAZODONE HYDROCHLORIDE [Concomitant]
  6. INVESTIGATIONAL DRUG UNSPECIFIED [Concomitant]
  7. ZOLPIDEM TARTRATE [Concomitant]

REACTIONS (3)
  - MANIA [None]
  - IRRITABILITY [None]
  - BIPOLAR I DISORDER [None]
